FAERS Safety Report 7201580-3 (Version None)
Quarter: 2010Q4

REPORT INFORMATION
  Report Type: 
  Country: None (occurrence: None)
  Receive Date: 20101214
  Receipt Date: 20101130
  Transmission Date: 20110411
  Serious: Yes (Hospitalization)
  Sender: FDA-Public Use
  Company Number: 2010SP002396

PATIENT
  Age: 67 Year
  Sex: Female
  Weight: 68 kg

DRUGS (69)
  1. XOPENEX [Suspect]
     Indication: CHRONIC OBSTRUCTIVE PULMONARY DISEASE
     Dosage: PRN;INHALATION ; PRN;INHALATION
     Route: 055
     Dates: start: 20090118, end: 20090927
  2. XOPENEX [Suspect]
     Indication: CHRONIC OBSTRUCTIVE PULMONARY DISEASE
     Dosage: PRN;INHALATION ; PRN;INHALATION
     Route: 055
     Dates: start: 20100702
  3. FISH OIL [Concomitant]
  4. COD LIVER OIL [Concomitant]
  5. PREDNISONE [Concomitant]
  6. FUROSEMIDE [Concomitant]
  7. MAXALT /01406501/ [Concomitant]
  8. LIDODERM [Concomitant]
  9. SPIRIVA [Concomitant]
  10. VITAMIN A [Concomitant]
  11. ACIPHEX [Concomitant]
  12. LYRICA [Concomitant]
  13. HYDROCHLOROTHIAZIDE [Concomitant]
  14. FOSAMAX [Concomitant]
  15. FIBRE, DIETARY [Concomitant]
  16. MULTIVITAMINS AND IRON [Concomitant]
  17. CALCIUM W/MAGNESIUM/ZINC [Concomitant]
  18. LOVASTATIN [Concomitant]
  19. AMITRIPTYLINE HCL [Concomitant]
  20. TRAZODONE HYDROCHLORIDE [Concomitant]
  21. HYDROCODONE BITARTRATE AND ACETAMINOPHEN [Concomitant]
  22. FLECTOR /00372302/ [Concomitant]
  23. POLYETHYLENE GLYCOL [Concomitant]
  24. TUMS /00108001/ [Concomitant]
  25. POTASSIUM GLUCONATE TAB [Concomitant]
  26. ESTRACE [Concomitant]
  27. NEXIUM [Concomitant]
  28. OXYCODONE [Concomitant]
  29. POTASSIUM CHLORIDE [Concomitant]
  30. ADVAIR [Concomitant]
  31. MYCOSTATIN /00036501/ [Concomitant]
  32. SENOKOT [Concomitant]
  33. LEXAPRO [Concomitant]
  34. AVELOX [Concomitant]
  35. DELTASONE /00044701/ [Concomitant]
  36. PULMICORT [Concomitant]
  37. ZITHROMAX [Concomitant]
  38. SOLU-MEDROL [Concomitant]
  39. SEPTRA [Concomitant]
  40. MUCINEX DM [Concomitant]
  41. ROBITUSSIN AC /000074201/ [Concomitant]
  42. CHRONULAC [Concomitant]
  43. MOTRIN [Concomitant]
  44. ROCEPHIN /000074201/ [Concomitant]
  45. SODIUM CHLORIDE [Concomitant]
  46. ZOFRAN [Concomitant]
  47. LOVENOX [Concomitant]
  48. PRILOSEC [Concomitant]
  49. SYMBICORT [Concomitant]
  50. ATROVENT [Concomitant]
  51. PROVENTIL /00139501/ [Concomitant]
  52. PRAVACHOL [Concomitant]
  53. VARENICLINE [Concomitant]
  54. COLACE [Concomitant]
  55. ACETAMINOPHEN [Concomitant]
  56. ROXICODONE [Concomitant]
  57. HUMULIN R [Concomitant]
  58. BLINDED THERAPY [Concomitant]
  59. PROMETH W/ CODEINE [Concomitant]
  60. DIFLUCAN [Concomitant]
  61. LACTULOSE [Concomitant]
  62. K-DUR [Concomitant]
  63. AVELOX [Concomitant]
  64. DUCOLAX /00061602/ [Concomitant]
  65. SOLU-MEDROL [Concomitant]
  66. ATROVENT [Concomitant]
  67. ALBUTEROL [Concomitant]
  68. K-LYTE /00067301/ [Concomitant]
  69. SODIUM CHLORIDE [Concomitant]

REACTIONS (14)
  - ACUTE RESPIRATORY FAILURE [None]
  - BALANCE DISORDER [None]
  - CHEST PAIN [None]
  - DIASTOLIC DYSFUNCTION [None]
  - FALL [None]
  - HEAD INJURY [None]
  - HYPOXIA [None]
  - LEFT ATRIAL DILATATION [None]
  - MITRAL VALVE INCOMPETENCE [None]
  - MUSCULOSKELETAL CHEST PAIN [None]
  - PLEURAL EFFUSION [None]
  - RESPIRATORY DISTRESS [None]
  - RIB FRACTURE [None]
  - TRICUSPID VALVE INCOMPETENCE [None]
